FAERS Safety Report 4278010-7 (Version None)
Quarter: 2004Q1

REPORT INFORMATION
  Report Type: 
  Country: None (occurrence: None)
  Receive Date: 20040121
  Receipt Date: 20040105
  Transmission Date: 20041129
  Serious: Yes (Death, Hospitalization)
  Sender: FDA-Public Use
  Company Number: A02200303523

PATIENT
  Age: 82 Year
  Sex: Male

DRUGS (15)
  1. PLAVIX [Suspect]
     Indication: BRONCHITIS CHRONIC
     Route: 048
     Dates: end: 20030615
  2. EFFERALGAN CODEINE (PARACETAMOL/CODEINE) - TABLET - UNIT DOSE : UNKNOW [Suspect]
     Route: 048
     Dates: start: 20031108
  3. (PARACETAMOL) - UNKNOWN - 500 MG [Suspect]
     Dosage: 500 MG }QID
     Route: 048
     Dates: end: 20031115
  4. PREVISCAN - (FLUINDIONE) - TABLET - 20 MG [Suspect]
     Dosage: 15 MG/D EVERY 2 DAYS AND 10 MG/D THE OTHER DAYS
     Route: 048
     Dates: start: 20030615
  5. HEXAQUINE - (QUININE/THIAMINE) - UNKNOWN - UNIT DOSE : UNKNOWN [Suspect]
     Dates: start: 20031108
  6. CIBLOR - (AMOXICILLIN/CLAVULANIC ACID) - TABLET - UNIT DOSE : UNKNOWN [Suspect]
     Indication: SUPERINFECTION
     Dosage: 2 DF BID
     Route: 048
     Dates: start: 20031106, end: 20031108
  7. ADANCOR (NICORANDIL) [Concomitant]
  8. CARDIOCOR (BISOPROLOL FUMARATE) [Concomitant]
  9. CORVASAL(MOLSIDOMINE) [Concomitant]
  10. ZOCOR [Concomitant]
  11. OMIX(TAMSULOSIN HYDROCHLORIDE) [Concomitant]
  12. VASTAREL(TRIMETAZIDINE HYDROCHLORIDE) [Concomitant]
  13. FONZYLANE(BUFLOMEDIL HYDROCHLORIDE) [Concomitant]
  14. STABLON(TIANEPTINE) [Concomitant]
  15. DI-ANTALVIC(PARACETMOL/DEXTROPROPOXYPHENE) [Concomitant]

REACTIONS (14)
  - ACUTE CORONARY SYNDROME [None]
  - ANURIA [None]
  - AZOTAEMIA [None]
  - BRONCHITIS CHRONIC [None]
  - COOMBS TEST POSITIVE [None]
  - HAEMATURIA [None]
  - MYOCARDIAL INFARCTION [None]
  - NORMOCHROMIC NORMOCYTIC ANAEMIA [None]
  - OLIGURIA [None]
  - OVERDOSE [None]
  - PROTHROMBIN TIME PROLONGED [None]
  - RENAL FAILURE ACUTE [None]
  - SUPERINFECTION [None]
  - THROMBOCYTOPENIA [None]
